FAERS Safety Report 13020357 (Version 2)
Quarter: 2017Q1

REPORT INFORMATION
  Report Type: Report from Study
  Country: US (occurrence: US)
  Receive Date: 20161212
  Receipt Date: 20170210
  Transmission Date: 20170428
  Serious: Yes (Hospitalization, Other)
  Sender: FDA-Public Use
  Company Number: US-BRISTOL-MYERS SQUIBB COMPANY-BMS-2016-085656

PATIENT
  Age: 66 Year
  Sex: Male
  Weight: 96 kg

DRUGS (6)
  1. SERTRALINE [Concomitant]
     Active Substance: SERTRALINE HYDROCHLORIDE
     Indication: PRODUCT USED FOR UNKNOWN INDICATION
     Route: 065
  2. TORADOL [Concomitant]
     Active Substance: KETOROLAC TROMETHAMINE
     Indication: PRODUCT USED FOR UNKNOWN INDICATION
     Route: 065
  3. NIVOLUMAB [Suspect]
     Active Substance: NIVOLUMAB
     Indication: RENAL CELL CARCINOMA
     Dosage: 3 MG/KG, Q2WK
     Route: 042
     Dates: start: 20160915
  4. RIVAROXABAN [Suspect]
     Active Substance: RIVAROXABAN
     Indication: PRODUCT USED FOR UNKNOWN INDICATION
     Route: 065
  5. PREDNISOLONE. [Suspect]
     Active Substance: PREDNISOLONE
     Indication: PRODUCT USED FOR UNKNOWN INDICATION
     Route: 065
  6. ATIVAN [Concomitant]
     Active Substance: LORAZEPAM
     Indication: PRODUCT USED FOR UNKNOWN INDICATION
     Route: 065

REACTIONS (16)
  - Pulmonary embolism [Unknown]
  - Troponin increased [Unknown]
  - Dyspnoea [Unknown]
  - Peroneal nerve palsy [Unknown]
  - Asthenia [Recovering/Resolving]
  - Pneumonitis [Unknown]
  - Respiratory failure [Unknown]
  - Deep vein thrombosis [Unknown]
  - Pneumocystis jirovecii pneumonia [Unknown]
  - Depression [Unknown]
  - Pulmonary hypertension [Unknown]
  - Gastrointestinal haemorrhage [Unknown]
  - Hyponatraemia [Unknown]
  - Iron deficiency anaemia [Recovered/Resolved]
  - Packed red blood cell transfusion [Unknown]
  - Hypothyroidism [Unknown]

NARRATIVE: CASE EVENT DATE: 20160927
